FAERS Safety Report 10297556 (Version 5)
Quarter: 2014Q3

REPORT INFORMATION
  Report Type: Spontaneous
  Country: JP (occurrence: JP)
  Receive Date: 20140711
  Receipt Date: 20140908
  Transmission Date: 20150326
  Serious: Yes (Hospitalization)
  Sender: FDA-Public Use
  Company Number: JP-ELI_LILLY_AND_COMPANY-JP201407001259

PATIENT
  Age: 37 Year
  Sex: Female

DRUGS (6)
  1. BROTIZOLAM [Concomitant]
     Active Substance: BROTIZOLAM
     Indication: SCHIZOPHRENIA
     Dosage: 0.25 MG, QD
     Route: 048
     Dates: start: 200803, end: 20140703
  2. ABILIFY [Concomitant]
     Active Substance: ARIPIPRAZOLE
     Dosage: UNK
     Route: 065
  3. YODEL [Concomitant]
     Active Substance: SENNA LEAF
     Indication: PRODUCT USED FOR UNKNOWN INDICATION
     Dosage: 240 MG, QD
     Route: 048
  4. ZYPREXA [Suspect]
     Active Substance: OLANZAPINE
     Indication: SCHIZOPHRENIA
     Dosage: 20 MG, QD
     Route: 048
     Dates: start: 200803, end: 20140706
  5. ABILIFY [Concomitant]
     Active Substance: ARIPIPRAZOLE
     Indication: SCHIZOPHRENIA
     Dosage: UNK
     Route: 065
     Dates: start: 20140701
  6. ETIZOLAM [Concomitant]
     Active Substance: ETIZOLAM
     Indication: SCHIZOPHRENIA
     Dosage: UNK
     Route: 065
     Dates: start: 20140704

REACTIONS (7)
  - Mental status changes [Unknown]
  - Bacteraemia [Unknown]
  - Obesity [Not Recovered/Not Resolved]
  - Off label use [Recovered/Resolved]
  - Hepatic steatosis [Not Recovered/Not Resolved]
  - Diabetes mellitus [Recovering/Resolving]
  - Pyelonephritis [Unknown]

NARRATIVE: CASE EVENT DATE: 200803
